FAERS Safety Report 24750497 (Version 1)
Quarter: 2024Q4

REPORT INFORMATION
  Report Type: Report from Study
  Country: CN (occurrence: CN)
  Receive Date: 20241218
  Receipt Date: 20241218
  Transmission Date: 20250114
  Serious: Yes (Other)
  Sender: BEIGENE
  Company Number: CN-BEIGENE-BGN-2024-020274

PATIENT

DRUGS (4)
  1. TISLELIZUMAB [Suspect]
     Active Substance: TISLELIZUMAB
     Indication: Angiocentric lymphoma
     Dosage: 200 MILLIGRAM, DAY: 2, Q3WK
     Route: 041
  2. TISLELIZUMAB [Suspect]
     Active Substance: TISLELIZUMAB
     Dosage: 200 MILLIGRAM DAY: 1, INTERVAL: 2 MONTHS.
     Route: 041
  3. GEMCITABINE [Concomitant]
     Active Substance: GEMCITABINE
     Indication: Angiocentric lymphoma
     Dosage: 1 GRAM PER SQUARE METRE,DAY: 1 Q3WK
     Route: 041
  4. OXALIPLATIN [Concomitant]
     Active Substance: OXALIPLATIN
     Indication: Angiocentric lymphoma
     Dosage: 100 MILLIGRAM/SQ. METER,DAY: 1, Q3WK
     Route: 041

REACTIONS (1)
  - Autoimmune thyroiditis [Unknown]
